FAERS Safety Report 13305431 (Version 2)
Quarter: 2017Q1

REPORT INFORMATION
  Report Type: Spontaneous
  Country: US (occurrence: US)
  Receive Date: 20170308
  Receipt Date: 20170316
  Transmission Date: 20170428
  Serious: No
  Sender: FDA-Public Use
  Company Number: US-VERTEX PHARMACEUTICALS-2017-001206

PATIENT
  Age: 9 Year
  Sex: Male

DRUGS (4)
  1. CREON [Concomitant]
     Active Substance: PANCRELIPASE AMYLASE\PANCRELIPASE LIPASE\PANCRELIPASE PROTEASE
  2. LIPASE [Concomitant]
     Active Substance: LIPASE
  3. ORKAMBI [Suspect]
     Active Substance: IVACAFTOR\LUMACAFTOR
     Dosage: 100/ 125 MG, BID
     Route: 048
     Dates: start: 20170303
  4. ORKAMBI [Suspect]
     Active Substance: IVACAFTOR\LUMACAFTOR
     Indication: CYSTIC FIBROSIS
     Dosage: 100/ 125 MG, BID
     Route: 048
     Dates: start: 20170106, end: 20170228

REACTIONS (3)
  - Drug dose omission [Recovered/Resolved]
  - Abdominal pain upper [Unknown]
  - Insurance issue [Recovered/Resolved]

NARRATIVE: CASE EVENT DATE: 2017
